FAERS Safety Report 9204890 (Version 1)
Quarter: 2013Q2

REPORT INFORMATION
  Report Type: Spontaneous
  Country: GB (occurrence: GB)
  Receive Date: 20130402
  Receipt Date: 20130402
  Transmission Date: 20140414
  Serious: Yes (Other)
  Sender: FDA-Public Use
  Company Number: GB-UCBSA-081671

PATIENT
  Age: 70 Year
  Sex: Male

DRUGS (7)
  1. GLYCERYL TRINITRATE [Suspect]
  2. DICYCLOMINE HYDROCHLORIDE [Suspect]
     Indication: MUSCLE SPASMS
     Route: 048
  3. AMLODIPINE [Concomitant]
  4. ATENOLOL [Concomitant]
  5. ISOSORBIDE MONONITRATE [Concomitant]
  6. LIPITOR [Concomitant]
  7. RAMIPRIL [Concomitant]

REACTIONS (1)
  - Hiatus hernia [Unknown]
